FAERS Safety Report 6114975-6 (Version None)
Quarter: 2009Q1

REPORT INFORMATION
  Report Type: 
  Country: None (occurrence: None)
  Receive Date: 20090313
  Receipt Date: 20090303
  Transmission Date: 20090719
  Serious: Yes (Death)
  Sender: FDA-Public Use
  Company Number: AU-PFIZER INC-2009178815

PATIENT

DRUGS (3)
  1. CHAMPIX [Suspect]
     Dosage: UNK
  2. WARFARIN [Concomitant]
  3. ANTIHYPERTENSIVES [Concomitant]

REACTIONS (1)
  - HAEMORRHAGIC STROKE [None]
